FAERS Safety Report 23271343 (Version 1)
Quarter: 2023Q4

REPORT INFORMATION
  Report Type: Spontaneous
  Country: IN (occurrence: IN)
  Receive Date: 20231207
  Receipt Date: 20231207
  Transmission Date: 20240110
  Serious: Yes (Other)
  Sender: FDA-Public Use
  Company Number: IN-MYLANLABS-2023M1129342

PATIENT
  Age: 25 Year
  Sex: Female

DRUGS (10)
  1. URSODIOL [Suspect]
     Active Substance: URSODIOL
     Indication: Jaundice cholestatic
     Dosage: 300 MILLIGRAM, BID
     Route: 065
  2. CARBOPLATIN [Suspect]
     Active Substance: CARBOPLATIN
     Indication: Hodgkin^s disease
     Dosage: 600 MILLIGRAM; INFUSION
     Route: 065
     Dates: start: 20200711
  3. CIPROFLOXACIN [Concomitant]
     Active Substance: CIPROFLOXACIN
     Indication: Antibiotic therapy
     Dosage: UNK
     Route: 065
  4. NIVOLUMAB [Concomitant]
     Active Substance: NIVOLUMAB
     Indication: Hodgkin^s disease
     Dosage: 200 MILLIGRAM, BIWEEKLY
     Route: 042
     Dates: start: 20200515
  5. BLEOMYCIN [Concomitant]
     Active Substance: BLEOMYCIN SULFATE
     Indication: Hodgkin^s disease
     Dosage: UNK
     Route: 065
  6. VINBLASTINE [Concomitant]
     Active Substance: VINBLASTINE
     Indication: Hodgkin^s disease
     Dosage: UNK
     Route: 065
  7. DACARBAZINE [Concomitant]
     Active Substance: DACARBAZINE
     Indication: Hodgkin^s disease
     Dosage: UNK
     Route: 065
  8. GEMCITABINE [Concomitant]
     Active Substance: GEMCITABINE
     Indication: Hodgkin^s disease
     Dosage: UNK
     Route: 065
  9. DEXAMETHASONE [Concomitant]
     Active Substance: DEXAMETHASONE
     Indication: Hodgkin^s disease
     Dosage: UNK
     Route: 065
  10. DOXORUBICIN [Concomitant]
     Active Substance: DOXORUBICIN
     Indication: Hodgkin^s disease
     Dosage: UNK
     Route: 065

REACTIONS (2)
  - Drug ineffective [Unknown]
  - Myelosuppression [Unknown]
